FAERS Safety Report 8035496-X (Version None)
Quarter: 2012Q1

REPORT INFORMATION
  Report Type: 
  Country: None (occurrence: None)
  Receive Date: 20120111
  Receipt Date: 20120109
  Transmission Date: 20120608
  Serious: Yes (Other)
  Sender: FDA-Public Use
  Company Number: US-JNJFOC-20120102575

PATIENT
  Sex: Female
  Weight: 58.97 kg

DRUGS (11)
  1. LEVETIRACETAM [Concomitant]
     Indication: MIGRAINE
     Route: 048
  2. SUMATRIPTAN [Concomitant]
     Indication: MIGRAINE
     Route: 048
     Dates: start: 20000101
  3. COQ10 [Concomitant]
     Route: 048
     Dates: start: 19950101
  4. SIMPONI [Suspect]
     Indication: RHEUMATOID ARTHRITIS
     Route: 058
     Dates: start: 20100101
  5. CALCIUM 600 AND VITAMIN D [Concomitant]
     Route: 048
     Dates: start: 19950101
  6. ACTONEL [Concomitant]
     Indication: BONE LOSS
     Route: 048
     Dates: start: 20110101
  7. VITAMIN D [Concomitant]
     Route: 048
     Dates: start: 19950101
  8. CENTRUM MULTIVITAMINS [Concomitant]
     Route: 048
     Dates: start: 19950101
  9. BIOTIN [Concomitant]
     Route: 048
     Dates: start: 20080101
  10. METHOTREXATE [Concomitant]
     Indication: RHEUMATOID ARTHRITIS
     Route: 048
     Dates: start: 20060101, end: 20110301
  11. FISH OIL [Concomitant]
     Route: 048
     Dates: start: 19950101

REACTIONS (7)
  - DRUG DOSE OMISSION [None]
  - DEVICE MALFUNCTION [None]
  - ARTHRITIS [None]
  - OSTEOPENIA [None]
  - HEPATIC ENZYME INCREASED [None]
  - TENDON RUPTURE [None]
  - UNDERDOSE [None]
